FAERS Safety Report 4305801-6 (Version None)
Quarter: 2004Q1

REPORT INFORMATION
  Report Type: 
  Country: None (occurrence: None)
  Receive Date: 20040226
  Receipt Date: 20040226
  Transmission Date: 20041129
  Serious: Yes (Life-Threatening)
  Sender: FDA-Public Use
  Company Number: None

PATIENT
  Age: 61 Year
  Sex: Male
  Weight: 84.8 kg

DRUGS (9)
  1. DIGOXIN [Suspect]
     Indication: ATRIAL FIBRILLATION
     Dosage: 0.25 MG Q6HR X 4 ORAL
     Route: 048
     Dates: start: 20031103, end: 20031104
  2. AMIODARONE HCL [Concomitant]
  3. PREVACID [Concomitant]
  4. PHOSLO [Concomitant]
  5. PLAVIX [Concomitant]
  6. COREG [Concomitant]
  7. INSULIN [Concomitant]
  8. HEPARIN [Concomitant]
  9. PERCOCET [Concomitant]

REACTIONS (2)
  - BRADYCARDIA [None]
  - THERAPEUTIC AGENT TOXICITY [None]
